FAERS Safety Report 16284389 (Version 1)
Quarter: 2019Q2

REPORT INFORMATION
  Report Type: Report from Study
  Country: None (occurrence: BR)
  Receive Date: 20190508
  Receipt Date: 20190508
  Transmission Date: 20190711
  Serious: Yes (Hospitalization, Other)
  Sender: FDA-Public Use
  Company Number: BR-ABBVIE-19K-020-2769928-00

PATIENT
  Sex: Female
  Weight: 31 kg

DRUGS (1)
  1. HUMIRA [Suspect]
     Active Substance: ADALIMUMAB
     Indication: RHEUMATOID ARTHRITIS
     Route: 058
     Dates: start: 20180801

REACTIONS (8)
  - Bedridden [Unknown]
  - Asthenia [Unknown]
  - Tremor [Unknown]
  - Delirium [Unknown]
  - Malaise [Recovering/Resolving]
  - Dizziness [Unknown]
  - Hypophagia [Recovered/Resolved]
  - Depression [Unknown]

NARRATIVE: CASE EVENT DATE: 2019
